FAERS Safety Report 7460294-5 (Version None)
Quarter: 2011Q2

REPORT INFORMATION
  Report Type: 
  Country: None (occurrence: None)
  Receive Date: 20110505
  Receipt Date: 20110421
  Transmission Date: 20111010
  Serious: Yes (Other)
  Sender: FDA-Public Use
  Company Number: US-JNJFOC-20110409802

PATIENT
  Sex: Female
  Weight: 46.72 kg

DRUGS (3)
  1. REMICADE [Suspect]
     Indication: CROHN'S DISEASE
     Dosage: 3RD INFUSION
     Route: 042
  2. REMICADE [Suspect]
     Route: 042
  3. REMICADE [Suspect]
     Route: 042

REACTIONS (7)
  - FEELING HOT [None]
  - DYSPNOEA [None]
  - FLUSHING [None]
  - CHEST PAIN [None]
  - INFUSION RELATED REACTION [None]
  - PALPITATIONS [None]
  - COUGH [None]
